FAERS Safety Report 18072325 (Version 1)
Quarter: 2020Q3

REPORT INFORMATION
  Report Type: Spontaneous
  Country: IQ (occurrence: IQ)
  Receive Date: 20200727
  Receipt Date: 20200727
  Transmission Date: 20201103
  Serious: Yes (Disabling)
  Sender: FDA-Public Use
  Company Number: IQ-ASTRAZENECA-2020SE91273

PATIENT
  Sex: Male

DRUGS (1)
  1. TAGRISSO [Suspect]
     Active Substance: OSIMERTINIB
     Indication: NON-SMALL CELL LUNG CANCER METASTATIC
     Dosage: 80.0MG UNKNOWN
     Route: 048

REACTIONS (2)
  - Dementia [Unknown]
  - Hallucination [Unknown]

NARRATIVE: CASE EVENT DATE: 20200101
